FAERS Safety Report 8765790 (Version 1)
Quarter: 2012Q4

REPORT INFORMATION
  Report Type: 
  Country: US (occurrence: US)
  Receive Date: 20120903
  Receipt Date: 20120903
  Transmission Date: 20130627
  Serious: No
  Sender: FDA-Public Use
  Company Number: US-PFIZER INC-2012214417

PATIENT
  Age: 51 Year
  Sex: Female
  Weight: 65.76 kg

DRUGS (12)
  1. LYRICA [Suspect]
     Indication: FIBROMYALGIA
     Dosage: 75 mg, 2x/day
     Route: 048
     Dates: end: 2010
  2. LYRICA [Suspect]
     Dosage: 75 mg, 1x/day
     Route: 048
     Dates: start: 2010, end: 2010
  3. TOPIRAMATE [Concomitant]
     Indication: MIGRAINE
     Dosage: UNK
  4. HYDROCODONE [Concomitant]
     Dosage: UNK
  5. PROVIGIL [Concomitant]
     Dosage: UNK
  6. PREDNISONE [Concomitant]
     Dosage: UNK
  7. VITAMIN D [Concomitant]
     Dosage: 50000 IU, UNK
  8. VITAMIN B12 [Concomitant]
     Dosage: UNK
  9. DEPLIN [Concomitant]
     Dosage: UNK
  10. FOLIC ACID [Concomitant]
     Dosage: UNK
  11. COUMADINE [Concomitant]
  12. METHOTREXATE [Concomitant]

REACTIONS (1)
  - Pain [Recovered/Resolved]
